FAERS Safety Report 11835842 (Version 1)
Quarter: 2015Q4

REPORT INFORMATION
  Report Type: Spontaneous
  Country: US (occurrence: None)
  Receive Date: 20151214
  Receipt Date: 20151214
  Transmission Date: 20160305
  Serious: Yes (Disabling)
  Sender: FDA-Public Use
  Company Number: None

PATIENT
  Age: 67 Year
  Sex: Male
  Weight: 80.74 kg

DRUGS (1)
  1. VIAGRA [Suspect]
     Active Substance: SILDENAFIL CITRATE
     Indication: ERECTILE DYSFUNCTION
     Route: 048

REACTIONS (5)
  - Otorrhoea [None]
  - Decreased appetite [None]
  - Ageusia [None]
  - Sinus congestion [None]
  - Tinnitus [None]

NARRATIVE: CASE EVENT DATE: 20151211
